FAERS Safety Report 4693852-1 (Version None)
Quarter: 2005Q2

REPORT INFORMATION
  Report Type: 
  Country: None (occurrence: None)
  Receive Date: 20050615
  Receipt Date: 20050606
  Transmission Date: 20051028
  Serious: Yes (Death)
  Sender: FDA-Public Use
  Company Number: S05-USA-02978-01

PATIENT
  Age: 50 Year
  Sex: Female

DRUGS (2)
  1. CELEXA [Suspect]
     Indication: DEPRESSION
     Dates: end: 20050501
  2. LEXAPRO [Suspect]
     Indication: DEPRESSION
     Dates: end: 20050501

REACTIONS (1)
  - DRUG LEVEL INCREASED [None]
